FAERS Safety Report 18744383 (Version 2)
Quarter: 2021Q1

REPORT INFORMATION
  Report Type: Spontaneous
  Country: US (occurrence: US)
  Receive Date: 20210114
  Receipt Date: 20210320
  Transmission Date: 20210419
  Serious: No
  Sender: FDA-Public Use
  Company Number: US-ASTRAZENECA-2021A002934

PATIENT
  Sex: Female
  Weight: 81.6 kg

DRUGS (1)
  1. SYMBICORT [Suspect]
     Active Substance: BUDESONIDE\FORMOTEROL FUMARATE DIHYDRATE
     Indication: ASTHMA
     Dosage: 160/4.5 MCG TWO PUFFS TWICE A DAY
     Route: 055

REACTIONS (6)
  - Wrong technique in device usage process [Unknown]
  - Intentional device misuse [Unknown]
  - Product dose omission issue [Unknown]
  - Device malfunction [Unknown]
  - Chest pain [Recovering/Resolving]
  - Wrong technique in product usage process [Unknown]
